FAERS Safety Report 7963845-7 (Version None)
Quarter: 2011Q4

REPORT INFORMATION
  Report Type: 
  Country: None (occurrence: None)
  Receive Date: 20111208
  Receipt Date: 20111129
  Transmission Date: 20120403
  Serious: Yes (Hospitalization)
  Sender: FDA-Public Use
  Company Number: US-BAYER-201020942NA

PATIENT
  Age: 28 Year
  Sex: Female
  Weight: 70.295 kg

DRUGS (6)
  1. NSAID'S [Concomitant]
  2. IBUPROFEN (ADVIL) [Concomitant]
  3. NAPROXEN (ALEVE) [Concomitant]
  4. YASMIN [Suspect]
     Dosage: UNK
     Route: 048
     Dates: start: 20050601, end: 20060601
  5. CONTRACEPTIVES NOS [Concomitant]
  6. YASMIN [Suspect]
     Dosage: UNK
     Dates: start: 20050601, end: 20060407

REACTIONS (2)
  - DEEP VEIN THROMBOSIS [None]
  - PAIN [None]
